FAERS Safety Report 9461165 (Version 1)
Quarter: 2013Q3

REPORT INFORMATION
  Report Type: Spontaneous
  Country: US (occurrence: US)
  Receive Date: 20130816
  Receipt Date: 20130816
  Transmission Date: 20140515
  Serious: Yes (Hospitalization, Other)
  Sender: FDA-Public Use
  Company Number: US-ASTRAZENECA-2013SE62577

PATIENT
  Age: 93 Year
  Sex: Female
  Weight: 69.4 kg

DRUGS (2)
  1. ARIMIDEX [Suspect]
     Indication: BREAST CANCER
     Route: 048
     Dates: start: 20031001
  2. LACTULOSE [Concomitant]
     Indication: CONSTIPATION

REACTIONS (13)
  - Constipation [Recovered/Resolved]
  - Pyrexia [Recovered/Resolved]
  - Infection [Recovered/Resolved]
  - Hallucination [Recovered/Resolved]
  - Cellulitis [Unknown]
  - Hepatic enzyme increased [Unknown]
  - Spinal compression fracture [Unknown]
  - Dementia [Not Recovered/Not Resolved]
  - Dysphagia [Not Recovered/Not Resolved]
  - Dysstasia [Unknown]
  - Infrequent bowel movements [Recovered/Resolved]
  - Abdominal distension [Recovered/Resolved]
  - Gait disturbance [Unknown]
